FAERS Safety Report 16314689 (Version 5)
Quarter: 2023Q2

REPORT INFORMATION
  Report Type: Spontaneous
  Country: US (occurrence: None)
  Receive Date: 20190515
  Receipt Date: 20230629
  Transmission Date: 20230722
  Serious: Yes (Death, Hospitalization, Other)
  Sender: FDA-Public Use
  Company Number: 2019SE67623

PATIENT
  Age: 79 Year
  Sex: Male
  Weight: 58.1 kg

DRUGS (52)
  1. PRILOSEC [Suspect]
     Active Substance: OMEPRAZOLE MAGNESIUM
     Indication: Gastrooesophageal reflux disease
     Route: 048
  2. PRILOSEC [Suspect]
     Active Substance: OMEPRAZOLE MAGNESIUM
     Indication: Dyspepsia
     Route: 048
  3. PRILOSEC [Suspect]
     Active Substance: OMEPRAZOLE MAGNESIUM
     Indication: Gastrooesophageal reflux disease
     Route: 048
     Dates: start: 2016
  4. PRILOSEC [Suspect]
     Active Substance: OMEPRAZOLE MAGNESIUM
     Indication: Dyspepsia
     Route: 048
     Dates: start: 2016
  5. PRILOSEC [Suspect]
     Active Substance: OMEPRAZOLE MAGNESIUM
     Indication: Gastrooesophageal reflux disease
     Dosage: GENERIC
     Dates: start: 2016
  6. PRILOSEC [Suspect]
     Active Substance: OMEPRAZOLE MAGNESIUM
     Indication: Dyspepsia
     Dosage: GENERIC
     Dates: start: 2016
  7. NEXIUM [Suspect]
     Active Substance: ESOMEPRAZOLE MAGNESIUM
     Indication: Gastrooesophageal reflux disease
     Route: 048
     Dates: start: 1986
  8. NEXIUM [Suspect]
     Active Substance: ESOMEPRAZOLE MAGNESIUM
     Indication: Gastrooesophageal reflux disease
  9. NEXIUM 24HR [Suspect]
     Active Substance: ESOMEPRAZOLE MAGNESIUM
     Route: 048
  10. PRILOSEC OTC [Suspect]
     Active Substance: OMEPRAZOLE MAGNESIUM
     Route: 048
  11. PRILOSEC OTC [Suspect]
     Active Substance: OMEPRAZOLE MAGNESIUM
     Route: 048
     Dates: start: 2003, end: 2019
  12. PANTOPRAZOLE [Suspect]
     Active Substance: PANTOPRAZOLE
     Indication: Gastrooesophageal reflux disease
     Dates: start: 2019
  13. MONTELUKAST [Concomitant]
     Active Substance: MONTELUKAST SODIUM
  14. TORSEMIDE [Concomitant]
     Active Substance: TORSEMIDE
  15. AMIODARONE [Concomitant]
     Active Substance: AMIODARONE
  16. WARFARIN [Concomitant]
     Active Substance: WARFARIN
  17. ENTRESTO [Concomitant]
     Active Substance: SACUBITRIL\VALSARTAN
  18. XOPENEX [Concomitant]
     Active Substance: LEVALBUTEROL HYDROCHLORIDE
  19. LOSARTAN [Concomitant]
     Active Substance: LOSARTAN
  20. QVAR [Concomitant]
     Active Substance: BECLOMETHASONE DIPROPIONATE
  21. FUROSEMIDE [Concomitant]
     Active Substance: FUROSEMIDE
  22. PREDNISONE [Concomitant]
     Active Substance: PREDNISONE
  23. CEPHALEXIN [Concomitant]
     Active Substance: CEPHALEXIN
  24. AMOXICILLIN [Concomitant]
     Active Substance: AMOXICILLIN
  25. BENZONATATE [Concomitant]
     Active Substance: BENZONATATE
  26. CARVEDILOL [Concomitant]
     Active Substance: CARVEDILOL
  27. CEFUROXIME [Concomitant]
     Active Substance: CEFUROXIME
  28. CICLOPIROX [Concomitant]
     Active Substance: CICLOPIROX
  29. COUMADIN [Concomitant]
     Active Substance: WARFARIN SODIUM
  30. DOXYCYCLINE HYCLATE [Concomitant]
     Active Substance: DOXYCYCLINE HYCLATE
  31. FINASTERIDE [Concomitant]
     Active Substance: FINASTERIDE
  32. FLUTICASONE [Concomitant]
     Active Substance: FLUTICASONE
  33. FLUZONE [Concomitant]
     Active Substance: INFLUENZA A VIRUS A/CALIFORNIA/7/2009 X-179A (H1N1) ANTIGEN (FORMALDEHYDE INACTIVATED)\INFLUENZA A V
  34. HYDROCODONE [Concomitant]
     Active Substance: HYDROCODONE
  35. LORAZEPAM [Concomitant]
     Active Substance: LORAZEPAM
  36. METHYLPREDNISOLONE [Concomitant]
     Active Substance: METHYLPREDNISOLONE
  37. MINOCYCLINE [Concomitant]
     Active Substance: MINOCYCLINE HYDROCHLORIDE
  38. PREVNAR [Concomitant]
     Active Substance: PNEUMOCOCCAL 7-VALENT CONJUGATE VACCINE (DIPHTHERIA CRM197 PROTEIN)
  39. TAMSULOSIN [Concomitant]
     Active Substance: TAMSULOSIN
  40. TOPROL XL [Concomitant]
     Active Substance: METOPROLOL SUCCINATE
  41. TRAMADOL HCL [Concomitant]
     Active Substance: TRAMADOL HYDROCHLORIDE
  42. ZOSTAVAX [Concomitant]
     Active Substance: VARICELLA-ZOSTER VIRUS STRAIN OKA/MERCK LIVE ANTIGEN
  43. VITAMIN A [Concomitant]
     Active Substance: VITAMIN A
  44. VITAMIN D [Concomitant]
     Active Substance: VITAMIN D NOS
  45. VITAMIN B12 [Concomitant]
     Active Substance: CYANOCOBALAMIN
  46. CETIRIZINE HYDROCHLORIDE [Concomitant]
     Active Substance: CETIRIZINE HYDROCHLORIDE
  47. CALCIUM [Concomitant]
     Active Substance: CALCIUM
  48. IRON [Concomitant]
     Active Substance: IRON
  49. VITAMIN C [Concomitant]
     Active Substance: ASCORBIC ACID
  50. TUMS [Concomitant]
     Active Substance: CALCIUM CARBONATE
  51. ROLAIDS [Concomitant]
     Active Substance: CALCIUM CARBONATE\MAGNESIUM HYDROXIDE
  52. ALKA-SELTZER [Concomitant]
     Active Substance: ANHYDROUS CITRIC ACID\ASPIRIN\SODIUM BICARBONATE

REACTIONS (6)
  - Death [Fatal]
  - Chronic kidney disease [Unknown]
  - Renal failure [Not Recovered/Not Resolved]
  - Renal injury [Unknown]
  - End stage renal disease [Unknown]
  - Rebound acid hypersecretion [Unknown]

NARRATIVE: CASE EVENT DATE: 20120101
